FAERS Safety Report 7462113-X (Version None)
Quarter: 2011Q2

REPORT INFORMATION
  Report Type: 
  Country: None (occurrence: None)
  Receive Date: 20110506
  Receipt Date: 20081122
  Transmission Date: 20111010
  Serious: Yes (Hospitalization, Other)
  Sender: FDA-Public Use
  Company Number: US-BAYER-200839399NA

PATIENT
  Age: 64 Year
  Sex: Male
  Weight: 91 kg

DRUGS (28)
  1. PLATELETS [Concomitant]
     Dosage: 1 U, UNK
     Route: 042
  2. RETAVASE [Concomitant]
     Dosage: 10 U, BID
     Route: 042
     Dates: start: 20070106, end: 20070107
  3. VANCOMYCIN [Concomitant]
     Dosage: 1 GRAM ORDERED ONE DOSE AT A TIME
     Route: 042
     Dates: start: 20070110, end: 20070121
  4. PROCRIT [Concomitant]
     Dosage: 10,000 UNITS ON TUESDAYS AND FRIDAYS
     Route: 058
     Dates: start: 20070112
  5. RED BLOOD CELLS, LEUCOCYTE DEPLETED [Concomitant]
     Dosage: 4 U, UNK
     Route: 042
  6. AMARYL [Concomitant]
     Dosage: DAILY
     Route: 048
     Dates: start: 20030418
  7. CEPHALEXIN [Concomitant]
     Dosage: 500 MG, UNK
     Route: 048
     Dates: start: 20061023
  8. HEPARIN [Concomitant]
     Dosage: UNK
     Route: 042
     Dates: start: 20070106
  9. NITROGLYCERIN [Concomitant]
     Dosage: UNK
     Dates: start: 20070106
  10. LASIX [Concomitant]
     Dosage: 20 MG
     Route: 042
     Dates: start: 20070117
  11. TRASYLOL [Suspect]
     Indication: CORONARY ARTERY BYPASS
     Dosage: 200 ML, UNK
     Route: 042
     Dates: start: 20070117, end: 20070117
  12. TRASYLOL [Suspect]
     Indication: MITRAL VALVE REPAIR
     Dosage: TOTAL INFUSION AMOUNT OF 1002 ML
     Route: 042
     Dates: start: 20070117, end: 20070117
  13. LOPRESSOR [Concomitant]
     Dosage: 25 MG, TID
     Route: 048
     Dates: start: 20070106
  14. MUCOMYST [Concomitant]
     Dosage: 600 MG, TID
     Route: 048
     Dates: start: 20070107, end: 20070110
  15. FRESH FROZEN PLASMA [Concomitant]
     Dosage: 1 U, UNK
     Route: 042
  16. ALLEGRA D 24 HOUR [Concomitant]
     Dosage: UNK
     Route: 048
     Dates: start: 20061023
  17. DEMADEX [Concomitant]
     Dosage: 40 MG, UNK
     Route: 042
     Dates: start: 20070114, end: 20070115
  18. MORPHINE [Concomitant]
     Dosage: UNK
     Route: 042
     Dates: start: 20070106
  19. LASIX [Concomitant]
     Dosage: 20 MG, TID
     Route: 042
     Dates: start: 20070107
  20. BACTRIM [Concomitant]
     Dosage: UNK
     Route: 048
     Dates: start: 20070107
  21. LEVOPHED [Concomitant]
     Dosage: 20 ML/HOUR INFUSION
     Route: 042
     Dates: start: 20070117
  22. CEFUROXIME [Concomitant]
     Dosage: 1.5 G, UNK
     Route: 042
     Dates: start: 20070117, end: 20070117
  23. DOXYCYCLINE [DOXYCYCLINE] [Concomitant]
     Dosage: 100 MG, UNK
     Route: 048
     Dates: start: 20070102
  24. METFORMIN [Concomitant]
     Dosage: 1000 MG, BID
     Route: 048
     Dates: start: 20040101, end: 20070107
  25. ACETYLSALICYLIC ACID SRT [Concomitant]
     Dosage: 325 MG, UNK
     Route: 048
     Dates: start: 20070106
  26. LIDOCAINE [Concomitant]
     Dosage: UNK
     Route: 042
     Dates: start: 20070106
  27. REGITINE [PHENTOLAMINE HYDROCHLORIDE] [Concomitant]
     Dosage: 20 ML/HOUR INFUSION
     Route: 042
     Dates: start: 20070117
  28. INSULIN HUMAN [Concomitant]
     Dosage: 12.68 UNITS/HOUR
     Route: 042
     Dates: start: 20070117, end: 20070117

REACTIONS (11)
  - FEAR [None]
  - PAIN [None]
  - ANHEDONIA [None]
  - RENAL FAILURE [None]
  - RENAL INJURY [None]
  - EMOTIONAL DISTRESS [None]
  - UNEVALUABLE EVENT [None]
  - RENAL IMPAIRMENT [None]
  - STRESS [None]
  - ANXIETY [None]
  - INJURY [None]
